FAERS Safety Report 8354919-X (Version None)
Quarter: 2012Q2

REPORT INFORMATION
  Report Type: 
  Country: None (occurrence: None)
  Receive Date: 20120511
  Receipt Date: 20120509
  Transmission Date: 20120825
  Serious: Yes (Death, Other)
  Sender: FDA-Public Use
  Company Number: GB-PFIZER INC-GB-WYE-G05741010

PATIENT
  Age: 56 Year
  Sex: Male
  Weight: 82.8 kg

DRUGS (4)
  1. PROCYCLIDINE HYDROCHLORIDE [Concomitant]
     Dosage: UNK
  2. RISPERIDONE [Suspect]
     Indication: PSYCHOTIC DISORDER
     Dosage: 3 MG, 2X/DAY
     Route: 048
     Dates: start: 20080417
  3. VENLAFAXINE HCL [Suspect]
     Indication: PSYCHOTIC DISORDER
     Dosage: 75 MG, 1X/DAY
     Route: 048
     Dates: start: 20090108
  4. PROPRANOLOL [Concomitant]
     Dosage: UNK

REACTIONS (2)
  - MYOCARDIAL ISCHAEMIA [None]
  - CARDIOTOXICITY [None]
